FAERS Safety Report 23272537 (Version 1)
Quarter: 2023Q4

REPORT INFORMATION
  Report Type: Report from Study
  Country: US (occurrence: US)
  Receive Date: 20231207
  Receipt Date: 20231207
  Transmission Date: 20240109
  Serious: No
  Sender: FDA-Public Use
  Company Number: US-ALXN-A202308571

PATIENT
  Sex: Male

DRUGS (2)
  1. ULTOMIRIS [Suspect]
     Active Substance: RAVULIZUMAB-CWVZ
     Indication: Myasthenia gravis
     Dosage: UNK
     Route: 065
     Dates: start: 20230628
  2. HUMAN IMMUNOGLOBULIN G [Suspect]
     Active Substance: HUMAN IMMUNOGLOBULIN G
     Indication: Product used for unknown indication
     Dosage: UNK
     Route: 042

REACTIONS (10)
  - Pain [Unknown]
  - Flushing [Unknown]
  - Musculoskeletal pain [Unknown]
  - Drug ineffective [Unknown]
  - Gait disturbance [Unknown]
  - Hypersomnia [Unknown]
  - Eyelid ptosis [Not Recovered/Not Resolved]
  - Malaise [Unknown]
  - Visual impairment [Recovering/Resolving]
  - Asthenia [Unknown]
